FAERS Safety Report 9850093 (Version 1)
Quarter: 2013Q4

REPORT INFORMATION
  Report Type: Spontaneous
  Country: US (occurrence: None)
  Receive Date: 20131226
  Receipt Date: 20131226
  Transmission Date: 20140711
  Serious: Yes (Other)
  Sender: FDA-Public Use
  Company Number: PHEH2012US013821

PATIENT
  Age: 64 Year
  Sex: Female

DRUGS (2)
  1. SANDOSTATIN [Suspect]
     Indication: NEOPLASM MALIGNANT
     Dosage: 1000 UG, UNK
     Dates: end: 201201
  2. SYNTHROID (LEVOTHYROXINE SODIUM) [Concomitant]

REACTIONS (6)
  - Pulmonary oedema [None]
  - Blood pressure increased [None]
  - Diarrhoea [None]
  - Flushing [None]
  - Feeling abnormal [None]
  - Dyspnoea [None]
